FAERS Safety Report 24406145 (Version 1)
Quarter: 2024Q4

REPORT INFORMATION
  Report Type: Spontaneous
  Country: US (occurrence: US)
  Receive Date: 20241007
  Receipt Date: 20241007
  Transmission Date: 20250114
  Serious: Yes (Other)
  Sender: PFIZER
  Company Number: US-PFIZER INC-202400268110

PATIENT
  Age: 65 Year
  Sex: Male

DRUGS (2)
  1. EUCRISA [Suspect]
     Active Substance: CRISABOROLE
     Indication: Dermatitis atopic
     Dosage: UNK, 2X/DAY TO HANDS FOR MAINTENANCE (60-G AND 100-G)
  2. EUCRISA [Suspect]
     Active Substance: CRISABOROLE
     Indication: Rash

REACTIONS (2)
  - Cardiac operation [Unknown]
  - Off label use [Unknown]

NARRATIVE: CASE EVENT DATE: 20240101
